FAERS Safety Report 9102277 (Version 2)
Quarter: 2013Q1

REPORT INFORMATION
  Report Type: Spontaneous
  Country: US (occurrence: US)
  Receive Date: 20130218
  Receipt Date: 20130225
  Transmission Date: 20140127
  Serious: No
  Sender: FDA-Public Use
  Company Number: US-BIOGENIDEC-2013BI012545

PATIENT
  Age: 53 Year
  Sex: Female

DRUGS (3)
  1. TYSABRI [Suspect]
     Indication: MULTIPLE SCLEROSIS
     Route: 042
     Dates: start: 20080718
  2. AVONEX [Concomitant]
     Indication: MULTIPLE SCLEROSIS
     Route: 030
     Dates: start: 20080701
  3. LYRICA [Concomitant]

REACTIONS (7)
  - Drug hypersensitivity [Recovered/Resolved]
  - Muscle spasms [Not Recovered/Not Resolved]
  - Insomnia [Not Recovered/Not Resolved]
  - Diplopia [Not Recovered/Not Resolved]
  - Anaesthetic complication neurological [Recovered/Resolved with Sequelae]
  - Coordination abnormal [Not Recovered/Not Resolved]
  - Multiple sclerosis relapse [Recovered/Resolved]
